FAERS Safety Report 16961646 (Version 1)
Quarter: 2019Q4

REPORT INFORMATION
  Report Type: Spontaneous
  Country: US (occurrence: US)
  Receive Date: 20191025
  Receipt Date: 20191025
  Transmission Date: 20200122
  Serious: Yes (Other)
  Sender: FDA-Public Use
  Company Number: US-MYLANLABS-2019M1099979

PATIENT
  Age: 19 Year
  Sex: Female

DRUGS (2)
  1. DEXAMETHASONE. [Suspect]
     Active Substance: DEXAMETHASONE
     Indication: ADRENOGENITAL SYNDROME
     Dosage: ONE-HALF OF THE 0.5MG TABLET
     Route: 048
  2. DEXAMETHASONE. [Suspect]
     Active Substance: DEXAMETHASONE
     Indication: ADRENOGENITAL SYNDROME
     Dosage: 2.5 ML OF (0.5MG/5ML) SOLUTION
     Route: 048

REACTIONS (3)
  - Product label confusion [Recovered/Resolved]
  - Incorrect dose administered [Recovered/Resolved]
  - Adrenal insufficiency [Recovered/Resolved]
